FAERS Safety Report 14935391 (Version 1)
Quarter: 2018Q2

REPORT INFORMATION
  Report Type: Spontaneous
  Country: US (occurrence: US)
  Receive Date: 20180507
  Receipt Date: 20180507
  Transmission Date: 20180711
  Serious: No
  Sender: FDA-Public Use
  Company Number: None

PATIENT
  Sex: Female

DRUGS (1)
  1. CAPECITABINE 500MG WEST-WARD [Suspect]
     Active Substance: CAPECITABINE
     Indication: PRODUCT USED FOR UNKNOWN INDICATION
     Dosage: 1500MG IN AM AND 1000MG IN PM?14 DAYS ON AND 7 DAYS OFF  PO
     Route: 048
     Dates: start: 20180420

REACTIONS (2)
  - Unevaluable event [None]
  - Therapy cessation [None]
